FAERS Safety Report 13857119 (Version 1)
Quarter: 2017Q3

REPORT INFORMATION
  Report Type: Spontaneous
  Country: US (occurrence: US)
  Receive Date: 20170810
  Receipt Date: 20170810
  Transmission Date: 20171127
  Serious: No
  Sender: FDA-Public Use
  Company Number: US-ROCHE-757076

PATIENT
  Age: 6 Year
  Sex: Male
  Weight: 18.1 kg

DRUGS (1)
  1. TAMIFLU [Suspect]
     Active Substance: OSELTAMIVIR PHOSPHATE
     Indication: INFLUENZA
     Dosage: STRENGTH 12 MG/ML
     Route: 048
     Dates: start: 20110126, end: 20110127

REACTIONS (3)
  - Rash [Unknown]
  - Swelling face [Unknown]
  - Dry skin [Unknown]

NARRATIVE: CASE EVENT DATE: 20110127
